FAERS Safety Report 16018412 (Version 1)
Quarter: 2019Q1

REPORT INFORMATION
  Report Type: Spontaneous
  Country: FR (occurrence: FR)
  Receive Date: 20190228
  Receipt Date: 20190228
  Transmission Date: 20190418
  Serious: Yes (Other)
  Sender: FDA-Public Use
  Company Number: US-BRAINTREE LABORATORIES-190099

PATIENT
  Age: 75 Year
  Sex: Female

DRUGS (1)
  1. EZICLEN [Suspect]
     Active Substance: MAGNESIUM SULFATE\POTASSIUM SULFATE\SODIUM SULFATE
     Indication: COLONOSCOPY
     Route: 048

REACTIONS (2)
  - Disturbance in attention [None]
  - Hyponatraemia [None]

NARRATIVE: CASE EVENT DATE: 20190129
